FAERS Safety Report 4707138-X (Version None)
Quarter: 2005Q3

REPORT INFORMATION
  Report Type: 
  Country: None (occurrence: None)
  Receive Date: 20050706
  Receipt Date: 20050523
  Transmission Date: 20060218
  Serious: Yes (Death, Hospitalization)
  Sender: FDA-Public Use
  Company Number: IE-ROCHE-405435

PATIENT
  Age: 72 Year
  Sex: Female

DRUGS (1)
  1. CAPECITABINE [Suspect]
     Dosage: FOR DAYS ONE TO FOURTEEN OF EACH TWENTY ONE DAY CYCLE
     Route: 048
     Dates: start: 20050426, end: 20050510

REACTIONS (7)
  - ASCITES [None]
  - ASTHENIA [None]
  - DIARRHOEA [None]
  - HYPOKALAEMIA [None]
  - PLEURAL EFFUSION [None]
  - SMALL INTESTINAL OBSTRUCTION [None]
  - VOMITING [None]
